FAERS Safety Report 17019845 (Version 3)
Quarter: 2020Q2

REPORT INFORMATION
  Report Type: Spontaneous
  Country: BR (occurrence: BR)
  Receive Date: 20191112
  Receipt Date: 20200515
  Transmission Date: 20200713
  Serious: Yes (Other)
  Sender: FDA-Public Use
  Company Number: NVSC2019BR030681

PATIENT
  Sex: Male

DRUGS (3)
  1. EXELON PATCH [Suspect]
     Active Substance: RIVASTIGMINE
     Dosage: 13.3 MG, QD (PATCH 15 (CM2), RIVASTIGMINE BASE 27 MG)
     Route: 065
  2. GLIVEC [Suspect]
     Active Substance: IMATINIB MESYLATE
     Indication: CHRONIC MYELOID LEUKAEMIA
     Dosage: UNK
     Route: 065
  3. EXELON PATCH [Suspect]
     Active Substance: RIVASTIGMINE
     Indication: COGNITIVE DISORDER
     Dosage: 9.5 MG, QD (PATCH 10 (CM2), RIVASTIGMINE BASE 18 MG)
     Route: 062

REACTIONS (3)
  - Cognitive disorder [Unknown]
  - Hydrocephalus [Unknown]
  - Product adhesion issue [Unknown]
